FAERS Safety Report 7814701-6 (Version None)
Quarter: 2011Q4

REPORT INFORMATION
  Report Type: 
  Country: None (occurrence: None)
  Receive Date: 20111013
  Receipt Date: 20111013
  Transmission Date: 20120403
  Serious: Yes (Other)
  Sender: FDA-Public Use
  Company Number: None

PATIENT
  Age: 70 Year
  Sex: Male
  Weight: 100.6985 kg

DRUGS (2)
  1. NIASPAN [Suspect]
     Indication: BLOOD CHOLESTEROL INCREASED
     Dosage: 500MG 1 PER DAY
     Dates: start: 20110315
  2. NIASPAN [Suspect]
     Indication: BLOOD TRIGLYCERIDES INCREASED
     Dosage: 500MG 1 PER DAY
     Dates: start: 20110315

REACTIONS (7)
  - FLUSHING [None]
  - COUGH [None]
  - INCREASED UPPER AIRWAY SECRETION [None]
  - NECK PAIN [None]
  - MUSCULOSKELETAL PAIN [None]
  - HEADACHE [None]
  - FEELING ABNORMAL [None]
